FAERS Safety Report 7807476-8 (Version None)
Quarter: 2011Q4

REPORT INFORMATION
  Report Type: 
  Country: None (occurrence: None)
  Receive Date: 20111011
  Receipt Date: 20111005
  Transmission Date: 20120403
  Serious: Yes (Life-Threatening, Other)
  Sender: FDA-Public Use
  Company Number: PHHY2011JP88298

PATIENT
  Age: 13 Year
  Sex: Male

DRUGS (2)
  1. IMATINIB MESYLATE [Suspect]
     Indication: ACUTE LYMPHOCYTIC LEUKAEMIA
     Dosage: UNK
     Route: 048
  2. METHYLPHENIDATE HCL [Concomitant]
     Indication: HYPERKINESIA
     Dosage: UNK UKN, UNK
     Route: 048

REACTIONS (2)
  - PANCREATITIS ACUTE [None]
  - CARDIO-RESPIRATORY ARREST [None]
